FAERS Safety Report 10291569 (Version 1)
Quarter: 2014Q3

REPORT INFORMATION
  Report Type: Spontaneous
  Country: US (occurrence: US)
  Receive Date: 20140710
  Receipt Date: 20140710
  Transmission Date: 20150326
  Serious: Yes (Other)
  Sender: FDA-Public Use
  Company Number: PHHY2014US084445

PATIENT
  Age: 69 Year
  Sex: Male

DRUGS (3)
  1. HYDROCHLOROTHIAZIDE. [Concomitant]
     Active Substance: HYDROCHLOROTHIAZIDE
     Indication: HYPERTENSION
  2. BICALUTAMIDE. [Suspect]
     Active Substance: BICALUTAMIDE
     Indication: PRIAPISM
     Route: 048
  3. SILDENAFIL [Concomitant]
     Active Substance: SILDENAFIL
     Route: 048

REACTIONS (6)
  - Testicular atrophy [Unknown]
  - Prostatic specific antigen increased [Unknown]
  - Erectile dysfunction [Unknown]
  - Prostate cancer [Unknown]
  - Libido decreased [Unknown]
  - Gynaecomastia [Unknown]
